FAERS Safety Report 5870784-4 (Version None)
Quarter: 2008Q3

REPORT INFORMATION
  Report Type: 
  Country: None (occurrence: None)
  Receive Date: 20080904
  Receipt Date: 20080825
  Transmission Date: 20090109
  Serious: Yes (Hospitalization)
  Sender: FDA-Public Use
  Company Number: JP-JNJFOC-20080604830

PATIENT
  Sex: Female

DRUGS (8)
  1. FINIBAX [Suspect]
     Indication: PELVIC ABSCESS
     Route: 042
  2. VANCOMYCIN HYDROCHLORIDE [Suspect]
     Indication: PELVIC ABSCESS
     Route: 042
  3. LOXONIN [Concomitant]
     Indication: HEADACHE
  4. VOLTAREN [Concomitant]
     Indication: ANTIPYRESIS
  5. FLOMOXEF SODIUM [Concomitant]
  6. ISEPAMICIN SULFATE [Concomitant]
  7. CIPROFLOXACIN [Concomitant]
  8. NEUPOGEN [Concomitant]

REACTIONS (3)
  - NEPHRITIS INTERSTITIAL [None]
  - NEUTROPHIL COUNT DECREASED [None]
  - PYREXIA [None]
